FAERS Safety Report 20598724 (Version 2)
Quarter: 2022Q1

REPORT INFORMATION
  Report Type: Spontaneous
  Country: US (occurrence: None)
  Receive Date: 20220315
  Receipt Date: 20220316
  Transmission Date: 20220424
  Serious: No
  Sender: FDA-Public Use
  Company Number: US-ROCHE-2896303

PATIENT
  Age: 64 Year

DRUGS (2)
  1. XOLAIR [Suspect]
     Active Substance: OMALIZUMAB
     Indication: Product used for unknown indication
     Route: 065
  2. COVID-19 VACCINE [Concomitant]

REACTIONS (3)
  - Feeling abnormal [Not Recovered/Not Resolved]
  - Nasopharyngitis [Unknown]
  - Ear pain [Unknown]

NARRATIVE: CASE EVENT DATE: 20210301
